FAERS Safety Report 8501784-3 (Version None)
Quarter: 2012Q3

REPORT INFORMATION
  Report Type: 
  Country: None (occurrence: None)
  Receive Date: 20120705
  Receipt Date: 20120705
  Transmission Date: 20120928
  Serious: Yes (Hospitalization, Other)
  Sender: FDA-Public Use
  Company Number: None

PATIENT
  Sex: Female

DRUGS (4)
  1. NEXIUM [Concomitant]
  2. WELCHOL [Suspect]
     Indication: BLOOD CHOLESTEROL INCREASED
     Dosage: 3.75 G ONCE A DAY PO
     Route: 048
     Dates: start: 20120118, end: 20120401
  3. PRINPRO [Concomitant]
  4. ZESTRIL [Concomitant]

REACTIONS (2)
  - DYSPEPSIA [None]
  - OROPHARYNGEAL PAIN [None]
